FAERS Safety Report 6469844-9 (Version None)
Quarter: 2009Q4

REPORT INFORMATION
  Report Type: 
  Country: None (occurrence: None)
  Receive Date: 20091203
  Receipt Date: 20071130
  Transmission Date: 20100525
  Serious: Yes (Hospitalization)
  Sender: FDA-Public Use
  Company Number: JP-ELI_LILLY_AND_COMPANY-JP200712000772

PATIENT
  Sex: Male
  Weight: 64 kg

DRUGS (6)
  1. PEMETREXED [Suspect]
     Indication: PLEURAL MESOTHELIOMA MALIGNANT
     Dosage: 500 MG/M2, OTHER
     Route: 042
     Dates: start: 20070327, end: 20070713
  2. CISPLATIN [Suspect]
     Indication: PLEURAL MESOTHELIOMA MALIGNANT
     Dosage: 60 MG/M2, OTHER
     Route: 042
     Dates: start: 20070327, end: 20070713
  3. PANVITAN [Concomitant]
     Dosage: 1 G, OTHER
     Route: 048
     Dates: start: 20070316, end: 20071113
  4. HYDROXOCOBALAMIN ACETATE [Concomitant]
     Dosage: 1 MG, OTHER
     Route: 030
     Dates: start: 20070319
  5. NAUZELIN [Concomitant]
     Indication: NAUSEA
     Dosage: 60 MG, DAILY (1/D)
     Route: 054
     Dates: start: 20070516, end: 20070516
  6. NAUZELIN [Concomitant]
     Dosage: 10 MG, DAILY (1/D)
     Route: 042
     Dates: start: 20070517, end: 20070517

REACTIONS (1)
  - GASTRIC ULCER [None]
